FAERS Safety Report 11841213 (Version 1)
Quarter: 2015Q4

REPORT INFORMATION
  Report Type: Report from Study
  Country: DE (occurrence: DE)
  Receive Date: 20151216
  Receipt Date: 20151216
  Transmission Date: 20160305
  Serious: Yes (Other)
  Sender: FDA-Public Use
  Company Number: DE-CELGENE-DEU-2015121057

PATIENT
  Age: 54 Year
  Sex: Female
  Weight: 97 kg

DRUGS (1)
  1. REVLIMID [Suspect]
     Active Substance: LENALIDOMIDE
     Indication: PLASMA CELL MYELOMA
     Route: 048
     Dates: start: 20130708

REACTIONS (2)
  - Pregnancy test false positive [Recovered/Resolved]
  - Pregnancy test false positive [Recovered/Resolved]

NARRATIVE: CASE EVENT DATE: 20151014
